FAERS Safety Report 4356260-9 (Version None)
Quarter: 2004Q2

REPORT INFORMATION
  Report Type: 
  Country: None (occurrence: None)
  Receive Date: 20040511
  Receipt Date: 20040505
  Transmission Date: 20050107
  Serious: Yes (Other)
  Sender: FDA-Public Use
  Company Number: USA-2003-0010704

PATIENT
  Age: 24 Year
  Sex: Female

DRUGS (1)
  1. POVIDONE IODINE [Suspect]
     Dosage: TOPICAL
     Route: 061

REACTIONS (4)
  - CAUSTIC INJURY [None]
  - PAIN [None]
  - SCAR [None]
  - SKIN MACERATION [None]
